FAERS Safety Report 8884760 (Version 1)
Quarter: 2012Q4

REPORT INFORMATION
  Report Type: Report from Study
  Country: BR (occurrence: BR)
  Receive Date: 20121105
  Receipt Date: 20121105
  Transmission Date: 20130627
  Serious: Yes (Other)
  Sender: FDA-Public Use
  Company Number: BR-AMGEN-BRACT2012004868

PATIENT
  Age: 56 Year
  Sex: Female
  Weight: 79 kg

DRUGS (14)
  1. ETANERCEPT [Suspect]
     Indication: RHEUMATOID ARTHRITIS
     Dosage: 50 mg, weekly
     Route: 058
     Dates: start: 200805
  2. ETANERCEPT [Suspect]
     Dosage: 50 mg, 1x/day
     Route: 058
     Dates: start: 201111
  3. ETANERCEPT [Suspect]
     Dosage: UNK
     Dates: start: 201005
  4. ARAVA [Concomitant]
     Dosage: 20 mg, 1x/day
  5. RANITIDINE [Concomitant]
     Indication: PROPHYLAXIS
     Dosage: 150 mg, 1x/day
  6. ENALAPRIL [Concomitant]
     Indication: HYPERTENSION
     Dosage: 20 mg, 1x/day
  7. FUROSEMIDE [Concomitant]
     Dosage: 40 mg, 1x/day
  8. PREDNISONE [Concomitant]
     Dosage: 20 mg, daily
  9. TYLEX                              /00547501/ [Concomitant]
     Indication: PAIN
     Dosage: UNK mg, as needed (when feeling pain)
  10. CALCIUM D3 STADA [Concomitant]
     Dosage: UNK, 2x/day
  11. DIPIRONE [Concomitant]
     Dosage: UNK
  12. LEFLUNOMIDE [Concomitant]
     Dosage: UNK
  13. DIURET                             /00011801/ [Concomitant]
     Dosage: UNK
  14. PARACETAMOL [Concomitant]
     Indication: PAIN
     Dosage: UNK

REACTIONS (21)
  - Hypersensitivity [Unknown]
  - Needle issue [Unknown]
  - Influenza like illness [Unknown]
  - Joint injury [Unknown]
  - Arthropathy [Unknown]
  - Hip arthroplasty [Unknown]
  - Knee arthroplasty [Unknown]
  - Depressed mood [Unknown]
  - Feeling hot [Unknown]
  - Inflammation [Unknown]
  - Blood pressure abnormal [Unknown]
  - Sluggishness [Unknown]
  - Malaise [Unknown]
  - Proteus infection [Recovered/Resolved]
  - Injection site haematoma [Not Recovered/Not Resolved]
  - Injection site oedema [Not Recovered/Not Resolved]
  - Injection site swelling [Not Recovered/Not Resolved]
  - Injection site pain [Not Recovered/Not Resolved]
  - Injection site pruritus [Not Recovered/Not Resolved]
  - Injection site erythema [Unknown]
  - Injection site pain [Unknown]
